FAERS Safety Report 12462403 (Version 8)
Quarter: 2018Q2

REPORT INFORMATION
  Report Type: Report from Study
  Country: CA (occurrence: CA)
  Receive Date: 20160614
  Receipt Date: 20180618
  Transmission Date: 20180711
  Serious: Yes (Other)
  Sender: FDA-Public Use
  Company Number: CA-BRISTOL-MYERS SQUIBB COMPANY-BMS-2016-032662

PATIENT
  Age: 52 Year
  Sex: Female

DRUGS (1)
  1. ABATACEPT [Suspect]
     Active Substance: ABATACEPT
     Indication: RHEUMATOID ARTHRITIS
     Dosage: 500 MG, Q4WK
     Route: 042
     Dates: start: 20141210

REACTIONS (17)
  - Uterine leiomyoma [Unknown]
  - Chest discomfort [Recovering/Resolving]
  - Headache [Unknown]
  - Menorrhagia [Unknown]
  - Palpitations [Unknown]
  - Malaise [Unknown]
  - Dyspnoea [Unknown]
  - Fatigue [Unknown]
  - Body temperature increased [Unknown]
  - Tendon disorder [Unknown]
  - Influenza [Unknown]
  - Pain in extremity [Not Recovered/Not Resolved]
  - Arthropathy [Unknown]
  - Serum ferritin decreased [Unknown]
  - Musculoskeletal stiffness [Unknown]
  - Surgery [Unknown]
  - Limb operation [Unknown]

NARRATIVE: CASE EVENT DATE: 201510
